FAERS Safety Report 12092460 (Version 6)
Quarter: 2018Q2

REPORT INFORMATION
  Report Type: Spontaneous
  Country: US (occurrence: US)
  Receive Date: 20160219
  Receipt Date: 20180406
  Transmission Date: 20180711
  Serious: Yes (Hospitalization, Other)
  Sender: FDA-Public Use
  Company Number: US-009507513-1602USA008670

PATIENT
  Age: 89 Year
  Sex: Female

DRUGS (21)
  1. ACETAMINOPHEN. [Concomitant]
     Active Substance: ACETAMINOPHEN
     Dosage: 650 MG, Q4H, AS NEEDED
  2. BUDESONIDE (+) FORMOTEROL FUMARATE [Concomitant]
     Active Substance: BUDESONIDE\FORMOTEROL FUMARATE
     Dosage: 2 INHALATIONS, EVERY 12 HOURS
  3. HEPARIN [Concomitant]
     Active Substance: HEPARIN SODIUM
     Dosage: 5000 UNITS, EVERY 8H
     Route: 058
  4. PANTOPRAZOLE [Concomitant]
     Active Substance: PANTOPRAZOLE
     Dosage: 40 MG, EVERY 24H
  5. TIOTROPIUM BROMIDE [Concomitant]
     Active Substance: TIOTROPIUM BROMIDE
     Dosage: 1 INHALATION, EVERY 24H
  6. ATORVASTATIN [Concomitant]
     Active Substance: ATORVASTATIN
     Dosage: 40 MG, EVERY EVENING (EVERY 24H)
  7. CEFEPIME [Concomitant]
     Active Substance: CEFEPIME HYDROCHLORIDE
     Dosage: 1G, EVERY 12 HOURS
  8. SINEMET [Suspect]
     Active Substance: CARBIDOPA\LEVODOPA
     Indication: PARKINSON^S DISEASE
     Dosage: 25-100 MG, EVERY 8 H
     Route: 048
  9. ALBUTEROL (+) IPRATROPIUM BROMIDE [Concomitant]
     Dosage: 1 INHALATION, EVERY 4 HOURS, AS NEEDED
  10. ONDANSETRON HYDROCHLORIDE. [Concomitant]
     Active Substance: ONDANSETRON HYDROCHLORIDE
     Dosage: 2 MG, EVEY 8H, AS NEEDED
  11. TRAMADOL HYDROCHLORIDE. [Concomitant]
     Active Substance: TRAMADOL HYDROCHLORIDE
     Dosage: 50 MG, Q12H, AS NEEDED
  12. ASPIRIN. [Concomitant]
     Active Substance: ASPIRIN
     Dosage: 81 MG, EVERY 24H
     Route: 048
  13. METOPROLOL TARTRATE. [Concomitant]
     Active Substance: METOPROLOL TARTRATE
     Dosage: 50 MG, EVERY 12 H
  14. PRINIVIL [Concomitant]
     Active Substance: LISINOPRIL
     Dosage: 40 MG, Q24H
     Route: 048
  15. FUROSEMIDE. [Concomitant]
     Active Substance: FUROSEMIDE
     Dosage: 20 MG, Q12H
     Route: 042
  16. FUROSEMIDE. [Concomitant]
     Active Substance: FUROSEMIDE
     Dosage: 20 MG, Q24H
  17. LIDOCAINE. [Concomitant]
     Active Substance: LIDOCAINE
     Dosage: PATCH EVERY 24 HOURS
  18. METOPROLOL. [Concomitant]
     Active Substance: METOPROLOL
     Dosage: 25 MG, EVERY 12H
  19. LINEZOLID. [Interacting]
     Active Substance: LINEZOLID
     Indication: ENTEROCOCCAL BACTERAEMIA
     Dosage: 600 MG, Q12H, PRESCRIPTION BOTTLE FILLED FOR 24 TABLETS, ON ADMISSION TO HOSPITAL, 11 TABLETS REMAIN
     Dates: start: 2015
  20. RIVAROXABAN [Concomitant]
     Active Substance: RIVAROXABAN
     Indication: ATRIAL FIBRILLATION
     Dosage: 15 MG, EVERY 24H
  21. SEVELAMER [Concomitant]
     Active Substance: SEVELAMER
     Dosage: 400 MG, THREE TIMES DAILY WITH MEALS

REACTIONS (2)
  - Serotonin syndrome [Recovered/Resolved]
  - Drug interaction [Recovered/Resolved]

NARRATIVE: CASE EVENT DATE: 201509
